FAERS Safety Report 4324943-2 (Version None)
Quarter: 2004Q1

REPORT INFORMATION
  Report Type: 
  Country: None (occurrence: None)
  Receive Date: 20040323
  Receipt Date: 20040212
  Transmission Date: 20041129
  Serious: No
  Sender: FDA-Public Use
  Company Number: USA040259227

PATIENT
  Age: 69 Year
  Sex: Male
  Weight: 89 kg

DRUGS (5)
  1. CIALIS [Suspect]
     Indication: ERECTILE DYSFUNCTION
     Dosage: 20 MG/AS NEEDED
     Dates: start: 20040201
  2. MONOPRIL [Concomitant]
  3. METOPROLOL [Concomitant]
  4. CLOPIDOGREL BISULFATE [Concomitant]
  5. LOVASTATIN [Concomitant]

REACTIONS (5)
  - BALANCE DISORDER [None]
  - DIZZINESS [None]
  - DRUG INEFFECTIVE [None]
  - HEADACHE [None]
  - MYALGIA [None]
